FAERS Safety Report 7691083-4 (Version None)
Quarter: 2011Q3

REPORT INFORMATION
  Report Type: 
  Country: None (occurrence: None)
  Receive Date: 20110818
  Receipt Date: 20110812
  Transmission Date: 20111222
  Serious: Yes (Death, Hospitalization)
  Sender: FDA-Public Use
  Company Number: ES-SANOFI-AVENTIS-2011SA044644

PATIENT
  Age: 73 Year
  Sex: Male

DRUGS (5)
  1. SPIRIVA [Concomitant]
     Dates: start: 20080301
  2. CHONDROITIN SULFATE [Concomitant]
     Dates: start: 20070726
  3. OMEPRAZOLE [Concomitant]
     Dates: start: 20070701
  4. GLIMEPIRIDE [Suspect]
     Route: 048
     Dates: start: 20070628, end: 20100528
  5. METFORMIN HYDROCHLORIDE [Suspect]
     Route: 048
     Dates: start: 20000101, end: 20100528

REACTIONS (2)
  - GASTROINTESTINAL PERFORATION [None]
  - MULTI-ORGAN FAILURE [None]
